FAERS Safety Report 8163921-2 (Version None)
Quarter: 2012Q1

REPORT INFORMATION
  Report Type: 
  Country: None (occurrence: None)
  Receive Date: 20120224
  Receipt Date: 20120216
  Transmission Date: 20120608
  Serious: Yes (Hospitalization)
  Sender: FDA-Public Use
  Company Number: US-MPIJNJ-2011-06488

PATIENT
  Sex: Female
  Weight: 55.147 kg

DRUGS (9)
  1. DEXAMETHASONE [Concomitant]
     Indication: PRODUCT USED FOR UNKNOWN INDICATION
  2. ZOLOFT [Concomitant]
     Indication: PRODUCT USED FOR UNKNOWN INDICATION
  3. COREG [Concomitant]
     Indication: PRODUCT USED FOR UNKNOWN INDICATION
  4. ZOCOR [Concomitant]
     Indication: PRODUCT USED FOR UNKNOWN INDICATION
  5. PROTONIX [Concomitant]
     Indication: PRODUCT USED FOR UNKNOWN INDICATION
  6. FENTANYL [Concomitant]
     Indication: PAIN
     Dosage: 25 UNK, UNK
     Route: 062
  7. SENNA LAX [Concomitant]
     Indication: PRODUCT USED FOR UNKNOWN INDICATION
  8. VELCADE [Suspect]
     Indication: MULTIPLE MYELOMA
     Dosage: 1.52 MG, CYCLIC
     Route: 042
     Dates: start: 20101129, end: 20110627
  9. MORPHINE SULFATE [Concomitant]
     Indication: PAIN
     Dosage: 20 MG, UNK

REACTIONS (2)
  - MULTIPLE MYELOMA [None]
  - MUSCULOSKELETAL CHEST PAIN [None]
